FAERS Safety Report 11075036 (Version 1)
Quarter: 2015Q2

REPORT INFORMATION
  Report Type: Spontaneous
  Country: IT (occurrence: IT)
  Receive Date: 20150429
  Receipt Date: 20150429
  Transmission Date: 20150821
  Serious: Yes (Other)
  Sender: FDA-Public Use
  Company Number: IT-JNJFOC-20150419162

PATIENT
  Age: 41 Year
  Sex: Female

DRUGS (2)
  1. RIVOTRIL [Suspect]
     Active Substance: CLONAZEPAM
     Indication: PRODUCT USED FOR UNKNOWN INDICATION
     Route: 048
     Dates: start: 20150421, end: 20150421
  2. RISPERDAL [Suspect]
     Active Substance: RISPERIDONE
     Indication: PRODUCT USED FOR UNKNOWN INDICATION
     Route: 048
     Dates: start: 20150421, end: 20150421

REACTIONS (4)
  - Vertigo [Unknown]
  - Sluggishness [Unknown]
  - Intentional overdose [Unknown]
  - Self injurious behaviour [Unknown]

NARRATIVE: CASE EVENT DATE: 20150421
